FAERS Safety Report 7605505 (Version 4)
Quarter: 2013Q1

REPORT INFORMATION
  Report Type: Spontaneous
  Country: JP (occurrence: JP)
  Receive Date: 20100924
  Receipt Date: 20130131
  Transmission Date: 20140127
  Serious: Yes (Other)
  Sender: FDA-Public Use
  Company Number: JP-ROCHE-728575

PATIENT
  Age: 48 Year
  Sex: Male

DRUGS (4)
  1. CELLCEPT [Suspect]
     Indication: PROPHYLAXIS AGAINST TRANSPLANT REJECTION
     Dosage: NOTE: DOSAGE IS UNCERTAIN.
     Route: 048
  2. PREDNISOLONE [Concomitant]
     Dosage: DOSE FORM: UNCERTAINTY
     Route: 065
  3. TACROLIMUS HYDRATE [Concomitant]
     Dosage: DOSE FORM: UNCERTAINTY, NOTE: DOSAGE IS UNCERTAIN
     Route: 065
  4. BASILIXIMAB [Concomitant]
     Dosage: NOTE: DOSAGE IS UNCERTAIN
     Route: 041

REACTIONS (1)
  - Intestinal obstruction [Recovered/Resolved]
